FAERS Safety Report 5162138-3 (Version None)
Quarter: 2006Q4

REPORT INFORMATION
  Report Type: 
  Country: None (occurrence: None)
  Receive Date: 20061121
  Receipt Date: 20061115
  Transmission Date: 20070319
  Serious: Yes (Life-Threatening)
  Sender: FDA-Public Use
  Company Number: DEWYE438707NOV06

PATIENT
  Age: 41 Year
  Sex: Male

DRUGS (2)
  1. VENLAFAXINE HCL EXTENDED-RELEASE [Suspect]
     Indication: DEPRESSION
     Dosage: 225 MG PER DAY ORAL
     Route: 048
     Dates: start: 20060905, end: 20061019
  2. MIRTAZAPINE [Concomitant]

REACTIONS (4)
  - ALANINE AMINOTRANSFERASE INCREASED [None]
  - ASPARTATE AMINOTRANSFERASE INCREASED [None]
  - BLOOD CREATINE PHOSPHOKINASE INCREASED [None]
  - MUSCULOSKELETAL DISCOMFORT [None]
